FAERS Safety Report 7515439-5 (Version None)
Quarter: 2011Q2

REPORT INFORMATION
  Report Type: 
  Country: None (occurrence: None)
  Receive Date: 20110601
  Receipt Date: 20110524
  Transmission Date: 20111010
  Serious: Yes (Hospitalization)
  Sender: FDA-Public Use
  Company Number: AT-BRISTOL-MYERS SQUIBB COMPANY-15776313

PATIENT
  Age: 27 Year
  Sex: Female

DRUGS (14)
  1. OXAZEPAM [Suspect]
     Dosage: 1 DOSAGE FORM: 15-20 (UNITS NOT SPECIFIED)
     Dates: start: 20110317, end: 20110325
  2. MIRTABENE [Suspect]
  3. CARBAMAZEPINE [Suspect]
     Dates: start: 20110223, end: 20110318
  4. ABILIFY [Suspect]
     Dosage: DOSE DECREASED TO 15MG 10MAR11-17MAR11,12APR-26APR11,27APR-03MAY11,04MAY-13MAY11,14MAY-ONG
     Dates: start: 20110310
  5. RISPERDAL [Suspect]
     Dosage: 1DF=1-4MG. THEN TO 20-40 MG
     Dates: start: 20110210, end: 20110221
  6. VENLAFAXINE HCL [Suspect]
     Dates: start: 20110225, end: 20110317
  7. TOPAMAX [Suspect]
     Dates: start: 20110302
  8. TIZANIDINE HCL [Suspect]
     Dosage: 1DF=6.UNIT NOT SPECIFIED
     Dates: start: 20110215, end: 20110317
  9. DOMINAL [Suspect]
     Dosage: 1 DOSAGE FORM: UP TO 160 MG (UNITS NOT SPECIFIED)
     Dates: start: 20110321
  10. STABLON [Suspect]
     Dates: start: 20110321, end: 20110325
  11. ZIPRASIDONE HCL [Suspect]
     Dosage: 24FEB11-16MAR11 (20-40 MG);27MAR11-02MAY11
     Dates: start: 20110224, end: 20110502
  12. DEPAKENE [Suspect]
     Dosage: 1 DOSAGE FORM: 500-1000 (UNITS NOT SPECIFIED)
     Dates: start: 20110325, end: 20110417
  13. PANTOPRAZOLE SODIUM [Suspect]
     Dosage: 1DF=40.UNIT NOT SPECIFIED
     Dates: start: 20110125, end: 20110317
  14. TOLVON [Suspect]
     Dates: start: 20110201, end: 20110302

REACTIONS (7)
  - LEUKOPENIA [None]
  - SUICIDE ATTEMPT [None]
  - RESTLESSNESS [None]
  - GALACTORRHOEA [None]
  - INSOMNIA [None]
  - BLOOD PROLACTIN INCREASED [None]
  - MERYCISM [None]
